FAERS Safety Report 8193097-7 (Version None)
Quarter: 2012Q1

REPORT INFORMATION
  Report Type: 
  Country: None (occurrence: None)
  Receive Date: 20120308
  Receipt Date: 20120308
  Transmission Date: 20120608
  Serious: Yes (Life-Threatening, Disabling, Other)
  Sender: FDA-Public Use
  Company Number: None

PATIENT
  Age: 76 Year
  Sex: Male
  Weight: 79.378 kg

DRUGS (2)
  1. LEVETIRACETAM [Concomitant]
  2. ATORVASTATIN [Suspect]
     Indication: BLOOD CHOLESTEROL INCREASED
     Route: 048
     Dates: start: 20120126, end: 20120209

REACTIONS (4)
  - PRODUCT SUBSTITUTION ISSUE [None]
  - CONVULSION [None]
  - DIARRHOEA [None]
  - HEADACHE [None]
